FAERS Safety Report 7267301-3 (Version None)
Quarter: 2011Q1

REPORT INFORMATION
  Report Type: 
  Country: None (occurrence: None)
  Receive Date: 20110201
  Receipt Date: 20110124
  Transmission Date: 20110831
  Serious: Yes (Other)
  Sender: FDA-Public Use
  Company Number: GB-ASTRAZENECA-2011SE04084

PATIENT
  Age: 54 Year
  Sex: Female

DRUGS (1)
  1. ANASTROZOLE [Suspect]
     Route: 048
     Dates: start: 20070101

REACTIONS (2)
  - LOSS OF LIBIDO [None]
  - PAIN [None]
